APPROVED DRUG PRODUCT: ACTINEX
Active Ingredient: MASOPROCOL
Strength: 10%
Dosage Form/Route: CREAM;TOPICAL
Application: N019940 | Product #001
Applicant: UNIV ARIZONA CANCER CENTER
Approved: Sep 4, 1992 | RLD: No | RS: No | Type: DISCN